FAERS Safety Report 21157664 (Version 1)
Quarter: 2022Q3

REPORT INFORMATION
  Report Type: Spontaneous
  Country: US (occurrence: None)
  Receive Date: 20220731
  Receipt Date: 20220731
  Transmission Date: 20221027
  Serious: No
  Sender: FDA-Public Use
  Company Number: None

PATIENT
  Age: 27 Year
  Sex: Female
  Weight: 72 kg

DRUGS (2)
  1. INVEGA SUSTENNA [Suspect]
     Active Substance: PALIPERIDONE PALMITATE
     Dates: start: 20220628
  2. Prozac (if necessary) [Concomitant]

REACTIONS (2)
  - Amenorrhoea [None]
  - Wrong technique in product usage process [None]

NARRATIVE: CASE EVENT DATE: 20220628
